FAERS Safety Report 20110848 (Version 1)
Quarter: 2021Q4

REPORT INFORMATION
  Report Type: Report from Study
  Country: US (occurrence: US)
  Receive Date: 20211124
  Receipt Date: 20211124
  Transmission Date: 20220303
  Serious: Yes (Other)
  Sender: FDA-Public Use
  Company Number: US-JNJFOC-20211134386

PATIENT
  Sex: Male

DRUGS (1)
  1. MACITENTAN [Suspect]
     Active Substance: MACITENTAN
     Indication: Pulmonary arterial hypertension
     Dosage: TAKE 1TABLET BY MOUTH DAILY
     Route: 048
     Dates: start: 20210922

REACTIONS (2)
  - Neuropathy peripheral [Unknown]
  - Headache [Unknown]
